FAERS Safety Report 6661308-2 (Version None)
Quarter: 2010Q1

REPORT INFORMATION
  Report Type: 
  Country: None (occurrence: None)
  Receive Date: 20100331
  Receipt Date: 20100319
  Transmission Date: 20100710
  Serious: Yes (Other)
  Sender: FDA-Public Use
  Company Number: PHHY2010US17420

PATIENT
  Sex: Male

DRUGS (1)
  1. GLEEVEC [Suspect]
     Indication: MYELODYSPLASTIC SYNDROME
     Dosage: 400 MG, BID
     Route: 048
     Dates: start: 20100219, end: 20100318

REACTIONS (1)
  - DRUG TOXICITY [None]
